FAERS Safety Report 7391134-0 (Version None)
Quarter: 2011Q2

REPORT INFORMATION
  Report Type: 
  Country: None (occurrence: None)
  Receive Date: 20110404
  Receipt Date: 20110316
  Transmission Date: 20111010
  Serious: Yes (Hospitalization, Other)
  Sender: FDA-Public Use
  Company Number: CH-BIOGENIDEC-2010BI027501

PATIENT
  Sex: Female

DRUGS (3)
  1. TYSABRI [Suspect]
     Indication: RELAPSING-REMITTING MULTIPLE SCLEROSIS
  2. VENTOLIN [Concomitant]
     Indication: ASTHMA
  3. CLONAZEPAM [Concomitant]

REACTIONS (7)
  - DISSEMINATED INTRAVASCULAR COAGULATION [None]
  - PREMATURE SEPARATION OF PLACENTA [None]
  - H1N1 INFLUENZA [None]
  - PRE-ECLAMPSIA [None]
  - MULTIPLE SCLEROSIS RELAPSE [None]
  - SHOCK HAEMORRHAGIC [None]
  - SUICIDAL IDEATION [None]
